FAERS Safety Report 24298256 (Version 1)
Quarter: 2024Q3

REPORT INFORMATION
  Report Type: Spontaneous
  Country: ID (occurrence: None)
  Receive Date: 20240909
  Receipt Date: 20240909
  Transmission Date: 20241017
  Serious: Yes (Death)
  Sender: ASTRAZENECA
  Company Number: 2024A204268

PATIENT
  Age: 65 Year
  Sex: Male

DRUGS (4)
  1. LOKELMA [Suspect]
     Active Substance: SODIUM ZIRCONIUM CYCLOSILICATE
     Indication: Hyperkalaemia
     Route: 048
  2. CA GLUCONASE [Concomitant]
  3. INSULIN + D40 [Concomitant]
  4. KALITAKE [Concomitant]

REACTIONS (1)
  - Pneumonia [Fatal]
